FAERS Safety Report 17518908 (Version 3)
Quarter: 2020Q1

REPORT INFORMATION
  Report Type: Spontaneous
  Country: US (occurrence: US)
  Receive Date: 20200309
  Receipt Date: 20200330
  Transmission Date: 20200409
  Serious: Yes (Other)
  Sender: FDA-Public Use
  Company Number: US-PFIZER INC-2020101762

PATIENT
  Age: 87 Year
  Sex: Female
  Weight: 56.69 kg

DRUGS (4)
  1. AZITHROMYCIN ANHYDROUS. [Suspect]
     Active Substance: AZITHROMYCIN ANHYDROUS
     Dosage: 250 MG, (3X A WEEK, YEAR ROUND)
     Dates: start: 20200204
  2. AZITHROMYCIN ANHYDROUS. [Suspect]
     Active Substance: AZITHROMYCIN ANHYDROUS
     Dosage: 250 MG, (3X A WEEK, YEAR ROUND)
     Dates: start: 20200314
  3. FAMOTIDINE. [Concomitant]
     Active Substance: FAMOTIDINE
     Dosage: 40 MG, UNK
  4. AZITHROMYCIN ANHYDROUS. [Suspect]
     Active Substance: AZITHROMYCIN ANHYDROUS
     Indication: BRONCHIECTASIS
     Dosage: 500 MG, UNK

REACTIONS (10)
  - Deafness [Unknown]
  - Gastric disorder [Unknown]
  - Product prescribing issue [Unknown]
  - Off label use [Unknown]
  - Off label use [Unknown]
  - Irritable bowel syndrome [Recovered/Resolved]
  - Nausea [Recovered/Resolved]
  - Disease recurrence [Recovered/Resolved]
  - Abdominal pain upper [Recovered/Resolved]
  - Gastrooesophageal reflux disease [Recovered/Resolved]

NARRATIVE: CASE EVENT DATE: 202001
